FAERS Safety Report 23984822 (Version 8)
Quarter: 2025Q1

REPORT INFORMATION
  Report Type: Report from Study
  Country: US (occurrence: US)
  Receive Date: 20240618
  Receipt Date: 20250106
  Transmission Date: 20250409
  Serious: Yes (Other)
  Sender: DECIPHERA PHARMACEUTICALS
  Company Number: US-DECIPHERA PHARMACEUTICALS LLC-2024US000520

PATIENT
  Age: 87 Year
  Sex: Male

DRUGS (7)
  1. QINLOCK [Suspect]
     Active Substance: RIPRETINIB
     Indication: Gastrointestinal stromal tumour
     Dosage: 150 MILLIGRAM, QD
     Route: 048
     Dates: start: 20240522, end: 20240604
  2. QINLOCK [Suspect]
     Active Substance: RIPRETINIB
     Dosage: 100 MILLIGRAM, QD
     Route: 048
     Dates: start: 2024, end: 2024
  3. QINLOCK [Suspect]
     Active Substance: RIPRETINIB
     Dosage: 150 MILLIGRAM, QD
     Route: 048
     Dates: start: 2024, end: 2024
  4. QINLOCK [Suspect]
     Active Substance: RIPRETINIB
     Route: 048
     Dates: start: 2024, end: 2024
  5. QINLOCK [Suspect]
     Active Substance: RIPRETINIB
     Dosage: 150 MILLIGRAM, QD
     Route: 048
     Dates: start: 2024, end: 2024
  6. PROLASTIN [Concomitant]
     Active Substance: .ALPHA.1-PROTEINASE INHIBITOR HUMAN
     Indication: Product used for unknown indication
  7. AMOXICILLIN [Concomitant]
     Active Substance: AMOXICILLIN
     Indication: Prophylaxis

REACTIONS (12)
  - Malignant neoplasm progression [Unknown]
  - Squamous cell carcinoma of skin [Not Recovered/Not Resolved]
  - Malignant melanoma [Recovering/Resolving]
  - Platelet count abnormal [Unknown]
  - Loss of personal independence in daily activities [Unknown]
  - Skin discolouration [Unknown]
  - Rash [Unknown]
  - Back pain [Unknown]
  - Arthralgia [Recovered/Resolved]
  - Dry skin [Unknown]
  - Alopecia [Unknown]
  - Pruritus [Unknown]

NARRATIVE: CASE EVENT DATE: 20240101
